FAERS Safety Report 5494616-1 (Version None)
Quarter: 2007Q4

REPORT INFORMATION
  Report Type: 
  Country: None (occurrence: None)
  Receive Date: 20071024
  Receipt Date: 20071018
  Transmission Date: 20080405
  Serious: Yes (Hospitalization)
  Sender: FDA-Public Use
  Company Number: US-ASTRAZENECA-2007UW22931

PATIENT
  Age: 68 Year
  Sex: Female
  Weight: 88.5 kg

DRUGS (3)
  1. ARIMIDEX [Suspect]
     Indication: BREAST CANCER FEMALE
     Route: 048
     Dates: start: 20050101
  2. SYNTHROID [Concomitant]
  3. BONIVA [Concomitant]

REACTIONS (13)
  - ARTHRALGIA [None]
  - ASTHENIA [None]
  - BODY TEMPERATURE INCREASED [None]
  - BONE DENSITY DECREASED [None]
  - DEHYDRATION [None]
  - DRY MOUTH [None]
  - DYSPNOEA [None]
  - FALL [None]
  - HEADACHE [None]
  - HOT FLUSH [None]
  - LOSS OF CONSCIOUSNESS [None]
  - PAIN IN JAW [None]
  - THIRST [None]
